FAERS Safety Report 24194465 (Version 1)
Quarter: 2024Q3

REPORT INFORMATION
  Report Type: Spontaneous
  Country: US (occurrence: US)
  Receive Date: 20240809
  Receipt Date: 20240809
  Transmission Date: 20241017
  Serious: No
  Sender: BAUSCH AND LOMB
  Company Number: US-BAUSCHBL-2024BNL031062

PATIENT
  Age: 78 Year
  Sex: Female

DRUGS (2)
  1. LUMIFY [Suspect]
     Active Substance: BRIMONIDINE TARTRATE
     Indication: Ocular hyperaemia
     Dosage: 1 DROP INTO RIGHT EYE
     Route: 047
     Dates: start: 20240704, end: 202407
  2. LUMIFY [Suspect]
     Active Substance: BRIMONIDINE TARTRATE
     Dosage: PATIENT WHO BEGAN USING LUMIFY EYE DROPS, 1 DROP INTO THE RIGHT EYE ONCE EVERY OTHER DAY
     Route: 047
     Dates: start: 202407, end: 2024

REACTIONS (2)
  - Hordeolum [Unknown]
  - Inappropriate schedule of product administration [Unknown]

NARRATIVE: CASE EVENT DATE: 20240701
